FAERS Safety Report 9712857 (Version 2)
Quarter: 2013Q4

REPORT INFORMATION
  Report Type: Spontaneous
  Country: US (occurrence: US)
  Receive Date: 20131126
  Receipt Date: 20131126
  Transmission Date: 20140711
  Serious: No
  Sender: FDA-Public Use
  Company Number: US-BRISTOL-MYERS SQUIBB COMPANY-18936443

PATIENT
  Sex: Female
  Weight: 90.7 kg

DRUGS (5)
  1. BYDUREON [Suspect]
     Indication: TYPE 2 DIABETES MELLITUS
     Dosage: NO OF INJ:5
  2. METFORMIN [Concomitant]
  3. GLYBURIDE [Concomitant]
  4. ONGLYZA TABS 5 MG [Concomitant]
  5. DOXAZOSIN [Concomitant]

REACTIONS (4)
  - Rash pruritic [Unknown]
  - Local swelling [Unknown]
  - Injection site erythema [Not Recovered/Not Resolved]
  - Injection site nodule [Not Recovered/Not Resolved]
